FAERS Safety Report 5366093-2 (Version None)
Quarter: 2007Q2

REPORT INFORMATION
  Report Type: 
  Country: None (occurrence: None)
  Receive Date: 20070611
  Receipt Date: 20070328
  Transmission Date: 20071010
  Serious: Yes (Death, Other)
  Sender: FDA-Public Use
  Company Number: USA-2006-0023909

PATIENT
  Age: 27 Year
  Sex: Male
  Weight: 69.4 kg

DRUGS (7)
  1. OXYCONTIN [Suspect]
     Indication: DRUG ABUSER
  2. COCAINE (COCAINE) [Suspect]
     Indication: DRUG ABUSER
  3. HYDROCODONE BITARTRATE [Suspect]
     Indication: DRUG ABUSER
  4. OXYMORPHONE (OXYMORPHONE) [Suspect]
     Indication: DRUG ABUSER
  5. ALPRAZOLAM [Suspect]
     Indication: DRUG ABUSER
  6. CARISOPRODOL [Suspect]
     Indication: DRUG ABUSER
  7. MEPROBAMATE [Suspect]
     Indication: DRUG ABUSER

REACTIONS (1)
  - DRUG ABUSER [None]
